FAERS Safety Report 4539626-3 (Version None)
Quarter: 2004Q4

REPORT INFORMATION
  Report Type: 
  Country: None (occurrence: None)
  Receive Date: 20041223
  Receipt Date: 20041215
  Transmission Date: 20050328
  Serious: Yes (Other)
  Sender: FDA-Public Use
  Company Number: GBWYE287817DEC04

PATIENT

DRUGS (1)
  1. EFFEXOR [Suspect]

REACTIONS (2)
  - DYSPHAGIA [None]
  - OROPHARYNGEAL SWELLING [None]
